FAERS Safety Report 11304468 (Version 1)
Quarter: 2015Q3

REPORT INFORMATION
  Report Type: Spontaneous
  Country: US (occurrence: US)
  Receive Date: 20150723
  Receipt Date: 20150723
  Transmission Date: 20151125
  Serious: No
  Sender: FDA-Public Use
  Company Number: US-JNJFOC-20150508686

PATIENT
  Age: 71 Year
  Sex: Female

DRUGS (3)
  1. REMICADE INFUSION [Concomitant]
     Indication: RHEUMATOID ARTHRITIS
     Dosage: 300 MG EVERY 5 WEEKS.START DATE-11/UU/2014.
     Route: 065
     Dates: start: 2014
  2. ZYRTEC [Suspect]
     Active Substance: CETIRIZINE HYDROCHLORIDE
     Indication: PREMEDICATION
     Route: 048
     Dates: start: 20150511
  3. ZYRTEC [Suspect]
     Active Substance: CETIRIZINE HYDROCHLORIDE
     Route: 048

REACTIONS (2)
  - Drug ineffective for unapproved indication [Unknown]
  - Off label use [Unknown]
